FAERS Safety Report 4537665-X (Version None)
Quarter: 2004Q4

REPORT INFORMATION
  Report Type: 
  Country: None (occurrence: None)
  Receive Date: 20041216
  Receipt Date: 20040629
  Transmission Date: 20050328
  Serious: Yes (Hospitalization)
  Sender: FDA-Public Use
  Company Number: HQWYE824130JUN04

PATIENT
  Age: 35 Year
  Sex: Male
  Weight: 66.28 kg

DRUGS (3)
  1. EFFEXOR XR [Suspect]
     Indication: BIPOLAR I DISORDER
     Dosage: 900 MG (OVERDOSE AMOUNT), ORAL
     Route: 048
     Dates: start: 20040627, end: 20040627
  2. ALCOHOL (ETHANOL) [Suspect]
     Dosage: 17 BEERS (OVERDOSE AMOUNT)
     Dates: start: 20040627, end: 20040627
  3. TRAZODONE (TRAZODONE) [Suspect]
     Indication: DEPRESSION
     Dosage: 200 MG (OVERDOSE AMOUNT), ORAL
     Route: 048
     Dates: start: 20040627, end: 20040627

REACTIONS (8)
  - ASTHENIA [None]
  - EYE DISORDER [None]
  - HYPERHIDROSIS [None]
  - HYPOTENSION [None]
  - INTENTIONAL OVERDOSE [None]
  - MIOSIS [None]
  - RESPIRATORY ARREST [None]
  - SUICIDE ATTEMPT [None]
